FAERS Safety Report 5285333-1 (Version None)
Quarter: 2007Q2

REPORT INFORMATION
  Report Type: 
  Country: None (occurrence: None)
  Receive Date: 20070403
  Receipt Date: 20070323
  Transmission Date: 20071010
  Serious: Yes (Other)
  Sender: FDA-Public Use
  Company Number: GB-PFIZER INC-2007024179

PATIENT
  Age: 54 Year
  Sex: Male
  Weight: 103 kg

DRUGS (3)
  1. AMLODIPINE [Suspect]
     Indication: HYPERTENSION
     Route: 048
     Dates: start: 20070216, end: 20070223
  2. ALLOPURINOL [Concomitant]
     Indication: GOUT
     Route: 048
  3. SIMVASTATIN [Concomitant]
     Indication: BLOOD CHOLESTEROL INCREASED
     Route: 048
     Dates: start: 20070116, end: 20070216

REACTIONS (3)
  - JOINT SWELLING [None]
  - PRURITUS [None]
  - PURPURA [None]
